FAERS Safety Report 22023650 (Version 1)
Quarter: 2023Q1

REPORT INFORMATION
  Report Type: Spontaneous
  Country: US (occurrence: US)
  Receive Date: 20230223
  Receipt Date: 20230223
  Transmission Date: 20230418
  Serious: Yes (Hospitalization, Other)
  Sender: FDA-Public Use
  Company Number: US-CADILA HEALTHCARE LIMITED-US-ZYDUS-088483

PATIENT

DRUGS (1)
  1. BOSENTAN [Suspect]
     Active Substance: BOSENTAN
     Indication: Product used for unknown indication
     Dosage: , BID
     Route: 048

REACTIONS (4)
  - Pneumonia [Recovering/Resolving]
  - Systemic scleroderma [Recovering/Resolving]
  - Cough [Recovering/Resolving]
  - Pulmonary oedema [Recovering/Resolving]

NARRATIVE: CASE EVENT DATE: 20230101
